FAERS Safety Report 8494806-X (Version None)
Quarter: 2012Q3

REPORT INFORMATION
  Report Type: 
  Country: None (occurrence: None)
  Receive Date: 20120709
  Receipt Date: 20120703
  Transmission Date: 20120928
  Serious: Yes (Hospitalization)
  Sender: FDA-Public Use
  Company Number: US-BAYER-2011-075161

PATIENT
  Age: 30 Year
  Sex: Female

DRUGS (30)
  1. BENADRYL [Concomitant]
     Dosage: 25 MG, UNK
     Route: 048
     Dates: start: 20030104, end: 20030107
  2. MACROBID [Concomitant]
     Dosage: 100 MG, UNK
  3. MAGNESIUM HYDROXIDE TAB [Concomitant]
     Dosage: 30 ML, UNK
     Route: 048
  4. ANCEF [Concomitant]
     Dosage: 1 G, UNK
     Route: 042
     Dates: start: 20030103, end: 20030104
  5. CEPACOL [Concomitant]
     Dosage: 1 TAB
     Route: 048
  6. MORPHINE SULFATE [Concomitant]
     Dosage: 2-4 MG
     Route: 042
     Dates: start: 20030103, end: 20030104
  7. PHENERGAN HCL [Concomitant]
     Dosage: 12.5 - 25 MG
     Route: 042
     Dates: start: 20030103, end: 20030109
  8. PREDNISONE [Concomitant]
     Dosage: 20 MG, TABLET
  9. ACETAMINOPHEN [Concomitant]
     Dosage: 325-650 MG
     Route: 048
     Dates: start: 20030105, end: 20030109
  10. VICODIN [Concomitant]
     Indication: PAIN
     Dosage: 5/500 ONE TO TWO Q  4-6 HOURS PRN
     Route: 048
     Dates: start: 20030107, end: 20030110
  11. DEMEROL [Concomitant]
     Dosage: 100 MG, UNK
     Route: 048
     Dates: start: 20030108, end: 20030109
  12. DILAUDID [Concomitant]
     Dosage: 1-2 MG
     Route: 042
     Dates: start: 20030103, end: 20030106
  13. AMOXICILLIN [Concomitant]
     Indication: UPPER RESPIRATORY TRACT INFECTION
     Dosage: 500 MG, UNK
  14. CASCARA SAGRADA [Concomitant]
     Dosage: 5 ML, UNK
     Route: 048
  15. DIFLUCAN [Concomitant]
     Dosage: 150 MG, UNK
  16. HYDROCODONE BITARTRATE AND ACETAMINOPHEN [Concomitant]
     Dosage: 5/500 TAB
  17. PROTONIX [Concomitant]
     Dosage: 40 MG, UNK
     Route: 048
     Dates: start: 20030104, end: 20030110
  18. ROBAXIN [Concomitant]
     Indication: PAIN
     Dosage: 500 MG ONE Q. 6 H PRN
     Route: 048
     Dates: start: 20030104, end: 20030107
  19. TORADOL [Concomitant]
     Dosage: 30 MG, UNK
     Route: 042
  20. YASMIN [Suspect]
     Dosage: UNK
     Dates: start: 20030201, end: 20030301
  21. COLACE [Concomitant]
     Dosage: 100 MG, UNK
     Route: 048
     Dates: start: 20030104, end: 20030110
  22. DEXTROSE 5% [Concomitant]
     Dosage: 1000 ML, UNK
     Route: 042
     Dates: start: 20030103, end: 20030110
  23. METHOCARBAMOL [Concomitant]
     Dosage: 500 MG, UNK
  24. ZOFRAN [Concomitant]
     Indication: NAUSEA
     Dosage: 4 MG, ONE BID
     Route: 048
     Dates: start: 20030109, end: 20030110
  25. SODIUM CHLORIDE [Concomitant]
  26. LACTATED RINGER'S [Concomitant]
     Dosage: 1000 ML, UNK
     Route: 042
     Dates: start: 20030103, end: 20030110
  27. PERCOCET [Concomitant]
     Dosage: 1-2 TAB
     Route: 048
     Dates: start: 20030104, end: 20030107
  28. ASPIRIN [Concomitant]
     Indication: THROMBOSIS PROPHYLAXIS
     Dosage: ONE, QD
     Route: 048
     Dates: start: 20030104, end: 20030110
  29. CELEXA [Concomitant]
     Indication: DEPRESSION
     Dosage: 20 MG, UNK
  30. DULCOLAX [Concomitant]
     Dosage: 10 MG, UNK
     Route: 048
     Dates: start: 20030107, end: 20030110

REACTIONS (4)
  - INJURY [None]
  - DEEP VEIN THROMBOSIS [None]
  - PAIN [None]
  - PULMONARY EMBOLISM [None]
